FAERS Safety Report 6384894-9 (Version None)
Quarter: 2009Q4

REPORT INFORMATION
  Report Type: 
  Country: None (occurrence: None)
  Receive Date: 20091002
  Receipt Date: 20090923
  Transmission Date: 20100525
  Serious: Yes (Hospitalization, Other)
  Sender: FDA-Public Use
  Company Number: US-BIOGENIDEC-2009BI031294

PATIENT
  Age: 51 Year
  Sex: Female

DRUGS (1)
  1. AVONEX [Suspect]
     Indication: MULTIPLE SCLEROSIS
     Route: 030
     Dates: start: 20061012, end: 20061201

REACTIONS (6)
  - BRAIN OPERATION [None]
  - HIP SURGERY [None]
  - HYSTERECTOMY [None]
  - INJECTION SITE URTICARIA [None]
  - MALAISE [None]
  - PYREXIA [None]
